FAERS Safety Report 5777594-7 (Version None)
Quarter: 2008Q2

REPORT INFORMATION
  Report Type: 
  Country: None (occurrence: None)
  Receive Date: 20080618
  Receipt Date: 20080610
  Transmission Date: 20081010
  Serious: Yes (Life-Threatening, Hospitalization)
  Sender: FDA-Public Use
  Company Number: FR-SANOFI-SYNTHELABO-A02200801544

PATIENT
  Sex: Male
  Weight: 82 kg

DRUGS (7)
  1. GEMZAR [Concomitant]
     Route: 042
     Dates: start: 20080507, end: 20080507
  2. ELOXATIN [Suspect]
     Indication: TRANSITIONAL CELL CARCINOMA
     Route: 041
     Dates: start: 20080429, end: 20080429
  3. SOLU-MEDROL [Concomitant]
     Route: 042
     Dates: start: 20080507, end: 20080507
  4. VOGALENE [Concomitant]
     Route: 042
     Dates: start: 20080430, end: 20080506
  5. TRANXENE [Concomitant]
     Route: 042
     Dates: start: 20080507, end: 20080507
  6. PERIDYS [Concomitant]
     Route: 048
     Dates: start: 20080507, end: 20080508
  7. ZOPHREN [Concomitant]
     Route: 042
     Dates: start: 20080507, end: 20080507

REACTIONS (5)
  - HEPATIC FAILURE [None]
  - JAUNDICE [None]
  - RENAL FAILURE [None]
  - THROMBOCYTOPENIA [None]
  - VENOOCCLUSIVE LIVER DISEASE [None]
